FAERS Safety Report 4449567-8 (Version None)
Quarter: 2004Q3

REPORT INFORMATION
  Report Type: 
  Country: None (occurrence: None)
  Receive Date: 20040913
  Receipt Date: 20040913
  Transmission Date: 20050211
  Serious: Yes (Other)
  Sender: FDA-Public Use
  Company Number: None

PATIENT
  Age: 35 Year
  Sex: Female
  Weight: 58.9676 kg

DRUGS (1)
  1. ZOLOFT [Suspect]
     Indication: DEPRESSION
     Dosage: 100 MIL ONCE DAILY
     Route: 048
     Dates: start: 20020401, end: 20031201

REACTIONS (8)
  - ACNE [None]
  - AGITATION [None]
  - ANGER [None]
  - CONSTIPATION [None]
  - CRYING [None]
  - DIARRHOEA [None]
  - HEADACHE [None]
  - WEIGHT INCREASED [None]
